FAERS Safety Report 4584051-2 (Version None)
Quarter: 2005Q1

REPORT INFORMATION
  Report Type: 
  Country: None (occurrence: None)
  Receive Date: 20050125
  Receipt Date: 20041028
  Transmission Date: 20050727
  Serious: No
  Sender: FDA-Public Use
  Company Number: USA041082681

PATIENT
  Age: 64 Year
  Sex: Female

DRUGS (3)
  1. FORTEO [Suspect]
     Indication: OSTEOPOROSIS
     Dates: start: 20040101
  2. CALTRATE + D [Concomitant]
  3. VITAMINS [Concomitant]

REACTIONS (6)
  - FEAR [None]
  - HOT FLUSH [None]
  - MUSCLE SPASMS [None]
  - NERVOUSNESS [None]
  - NIGHT SWEATS [None]
  - WEIGHT INCREASED [None]
